FAERS Safety Report 5085155-0 (Version None)
Quarter: 2006Q3

REPORT INFORMATION
  Report Type: 
  Country: None (occurrence: None)
  Receive Date: 20060822
  Receipt Date: 20060817
  Transmission Date: 20061208
  Serious: Yes (Other)
  Sender: FDA-Public Use
  Company Number: CA-BAYER-200613563GDS

PATIENT
  Age: 57 Year
  Sex: Female

DRUGS (2)
  1. AVELOX [Suspect]
     Indication: BRONCHOPNEUMONIA
     Dosage: UNIT DOSE: 400 MG
     Route: 048
     Dates: start: 20060801, end: 20060806
  2. LIPITOR [Concomitant]
     Indication: DRUG USE FOR UNKNOWN INDICATION
     Route: 065

REACTIONS (3)
  - HYPOTENSION [None]
  - SYNCOPE [None]
  - UPPER LIMB FRACTURE [None]
